FAERS Safety Report 11045652 (Version 2)
Quarter: 2015Q2

REPORT INFORMATION
  Report Type: Spontaneous
  Country: US (occurrence: US)
  Receive Date: 20150417
  Receipt Date: 20150420
  Transmission Date: 20150821
  Serious: No
  Sender: FDA-Public Use
  Company Number: US-GLAXOSMITHKLINE-US2015GSK051803

PATIENT
  Sex: Female

DRUGS (4)
  1. ADVAIR HFA [Suspect]
     Active Substance: FLUTICASONE PROPIONATE\SALMETEROL XINAFOATE
     Indication: PRODUCT USED FOR UNKNOWN INDICATION
  2. CODEINE [Suspect]
     Active Substance: CODEINE
     Indication: PRODUCT USED FOR UNKNOWN INDICATION
  3. VENTOLIN HFA [Suspect]
     Active Substance: ALBUTEROL SULFATE
     Indication: PRODUCT USED FOR UNKNOWN INDICATION
     Dosage: UNK, U
  4. OXYCODONE [Suspect]
     Active Substance: OXYCODONE
     Indication: PRODUCT USED FOR UNKNOWN INDICATION
     Dosage: UNK, U

REACTIONS (3)
  - Conversion disorder [Unknown]
  - Malaise [Unknown]
  - Asthenia [Unknown]
